FAERS Safety Report 8930244 (Version 1)
Quarter: 2012Q4

REPORT INFORMATION
  Report Type: 
  Country: US (occurrence: US)
  Receive Date: 20121128
  Receipt Date: 20121128
  Transmission Date: 20130627
  Serious: Yes (Other)
  Sender: FDA-Public Use
  Company Number: US-GLAXOSMITHKLINE-A1002919A

PATIENT
  Age: 33 Year
  Sex: Female

DRUGS (10)
  1. BENLYSTA [Suspect]
     Indication: SYSTEMIC LUPUS ERYTHEMATOSUS
     Route: 042
     Dates: start: 20121026
  2. SOLUMEDROL [Concomitant]
  3. BENADRYL [Concomitant]
  4. FENTANYL PATCH [Concomitant]
  5. OXYCODONE [Concomitant]
  6. SYNTHROID [Concomitant]
  7. TOPAMAX [Concomitant]
  8. AMBIEN [Concomitant]
  9. PREDNISONE [Concomitant]
  10. FLONASE [Concomitant]

REACTIONS (7)
  - Tunnel vision [Not Recovered/Not Resolved]
  - Abdominal pain upper [Unknown]
  - Vomiting [Unknown]
  - Dizziness [Unknown]
  - Fatigue [Unknown]
  - Arthralgia [Unknown]
  - Joint stiffness [Unknown]
